FAERS Safety Report 15269603 (Version 2)
Quarter: 2018Q3

REPORT INFORMATION
  Report Type: Spontaneous
  Country: DE (occurrence: DE)
  Receive Date: 20180813
  Receipt Date: 20180919
  Transmission Date: 20181010
  Serious: No
  Sender: FDA-Public Use
  Company Number: DE-AMGEN-DEUSP2018110128

PATIENT
  Age: 58 Year
  Sex: Male

DRUGS (3)
  1. MYCOPHENOLATE MOFETIL. [Concomitant]
     Active Substance: MYCOPHENOLATE MOFETIL
     Dosage: 2 G, QD
  2. SIROLIMUS. [Concomitant]
     Active Substance: SIROLIMUS
     Dosage: 1 MG, QD
  3. TALIMOGENE LAHERPAREPVEC [Suspect]
     Active Substance: TALIMOGENE LAHERPAREPVEC
     Indication: METASTATIC MALIGNANT MELANOMA
     Dosage: 0.1 ML, CYCLICAL (10^8 PFU/ML, TWO WEEKLY CYCLE UPTO 40 LESIONS)
     Route: 026
     Dates: end: 201707

REACTIONS (3)
  - Erythema [Unknown]
  - Skin hypopigmentation [Unknown]
  - Pyrexia [Unknown]
